FAERS Safety Report 7163164-5 (Version None)
Quarter: 2010Q4

REPORT INFORMATION
  Report Type: 
  Country: None (occurrence: None)
  Receive Date: 20101215
  Receipt Date: 20100308
  Transmission Date: 20110411
  Serious: Yes (Other)
  Sender: FDA-Public Use
  Company Number: US-PFIZER INC-2010030539

PATIENT
  Sex: Male

DRUGS (4)
  1. LYRICA [Suspect]
     Indication: PAIN
     Dosage: 75 MG, 2X/DAY
     Dates: start: 20090201
  2. ALPRAZOLAM [Concomitant]
     Dosage: 2.25 (UNITS UNSPECIFIED)
  3. GABAPENTIN [Concomitant]
     Dosage: 3 TIMES DAILY
  4. SINEMET [Concomitant]
     Dosage: UNK

REACTIONS (6)
  - ANXIETY [None]
  - CATARACT [None]
  - DEPRESSION [None]
  - DIZZINESS [None]
  - DRY MOUTH [None]
  - WEIGHT INCREASED [None]
